FAERS Safety Report 10728127 (Version 2)
Quarter: 2015Q1

REPORT INFORMATION
  Report Type: Spontaneous
  Country: JP (occurrence: JP)
  Receive Date: 20150121
  Receipt Date: 20150316
  Transmission Date: 20150721
  Serious: Yes (Death, Other)
  Sender: FDA-Public Use
  Company Number: JP-BRISTOL-MYERS SQUIBB COMPANY-BMS-2015-002522

PATIENT
  Age: 78 Year
  Sex: Male
  Weight: 52 kg

DRUGS (2)
  1. ERBITUX [Suspect]
     Active Substance: CETUXIMAB
     Dosage: 370 MG, UNK
     Route: 041
     Dates: end: 20140522
  2. ERBITUX [Suspect]
     Active Substance: CETUXIMAB
     Indication: HYPOPHARYNGEAL CANCER
     Dosage: 250 MG/M2, QWK
     Route: 041
     Dates: start: 20140403, end: 20140522

REACTIONS (5)
  - Pneumonia bacterial [Unknown]
  - Pneumothorax [Unknown]
  - Interstitial lung disease [Fatal]
  - Stomatitis [Not Recovered/Not Resolved]
  - Skin disorder [Not Recovered/Not Resolved]

NARRATIVE: CASE EVENT DATE: 20140502
